FAERS Safety Report 5742957-2 (Version None)
Quarter: 2008Q2

REPORT INFORMATION
  Report Type: 
  Country: None (occurrence: None)
  Receive Date: 20080519
  Receipt Date: 20080513
  Transmission Date: 20081010
  Serious: Yes (Hospitalization)
  Sender: FDA-Public Use
  Company Number: SE-ASTRAZENECA-2008SE02406

PATIENT
  Age: 20070 Day
  Sex: Female

DRUGS (2)
  1. ATACAND [Suspect]
     Indication: HYPERTENSION
     Route: 048
     Dates: start: 20050801, end: 20080414
  2. ZOLPIDEM TARTRATE [Concomitant]
     Route: 048

REACTIONS (1)
  - PANCREATITIS ACUTE [None]
